FAERS Safety Report 5313270-2 (Version None)
Quarter: 2007Q2

REPORT INFORMATION
  Report Type: 
  Country: None (occurrence: None)
  Receive Date: 20070501
  Receipt Date: 20070205
  Transmission Date: 20071010
  Serious: Yes (Other)
  Sender: FDA-Public Use
  Company Number: GB-NOVOPROD-260205

PATIENT
  Sex: Female
  Weight: 107 kg

DRUGS (7)
  1. LEVEMIR [Suspect]
     Indication: DIABETES MELLITUS INSULIN-DEPENDENT
     Dosage: 60 IU, QD
     Route: 058
     Dates: start: 20050930, end: 20070119
  2. LEVEMIR [Suspect]
     Dosage: 60 IU, QD
     Route: 058
     Dates: start: 20070119
  3. NOVORAPID [Suspect]
     Indication: DIABETES MELLITUS INSULIN-DEPENDENT
     Dosage: 30+32+30,
     Route: 058
     Dates: start: 20050930
  4. ENALAPRIL [Concomitant]
  5. FLUOXETINE [Concomitant]
  6. CO-CODAMOL [Concomitant]
  7. LANTUS [Concomitant]
     Indication: DIABETES MELLITUS INSULIN-DEPENDENT

REACTIONS (5)
  - EYE PRURITUS [None]
  - INJECTION SITE PRURITUS [None]
  - PALPITATIONS [None]
  - PARAESTHESIA [None]
  - RASH GENERALISED [None]
